FAERS Safety Report 7995173-8 (Version None)
Quarter: 2011Q4

REPORT INFORMATION
  Report Type: 
  Country: None (occurrence: None)
  Receive Date: 20111220
  Receipt Date: 20111213
  Transmission Date: 20120403
  Serious: Yes (Other)
  Sender: FDA-Public Use
  Company Number: JP-GLAXOSMITHKLINE-B0769625A

PATIENT
  Age: 41 Year
  Sex: Female

DRUGS (7)
  1. TOPIRAMATE [Concomitant]
     Route: 048
     Dates: start: 20111201
  2. DEPAS [Concomitant]
     Route: 048
  3. FLUNITRAZEPAM [Concomitant]
     Route: 048
  4. TOPIRAMATE [Concomitant]
     Route: 048
     Dates: start: 20101101
  5. CLONAZEPAM [Concomitant]
     Route: 048
  6. UNKNOWN MEDICATION [Concomitant]
     Route: 048
     Dates: start: 20110901
  7. PAXIL [Suspect]
     Indication: DEPRESSION
     Dosage: 20MG PER DAY
     Route: 048
     Dates: start: 20100201

REACTIONS (3)
  - ABNORMAL SLEEP-RELATED EVENT [None]
  - AMNESIA [None]
  - IMPULSIVE BEHAVIOUR [None]
